FAERS Safety Report 7820864-9 (Version None)
Quarter: 2011Q4

REPORT INFORMATION
  Report Type: 
  Country: None (occurrence: None)
  Receive Date: 20111018
  Receipt Date: 20111012
  Transmission Date: 20120403
  Serious: Yes (Hospitalization, Other)
  Sender: FDA-Public Use
  Company Number: US-AMGEN-USASP2011037887

PATIENT
  Age: 59 Year
  Sex: Female

DRUGS (4)
  1. METHOTREXATE [Concomitant]
     Dosage: UNK
  2. ENBREL [Suspect]
     Indication: PSORIATIC ARTHROPATHY
     Dosage: 50 MG, QWK
     Dates: start: 19981101
  3. ARAVA [Concomitant]
     Dosage: 10 MG, QD
     Dates: start: 20100101
  4. ENBREL [Suspect]
     Dosage: 50 MG, QWK

REACTIONS (17)
  - SPINAL COLUMN STENOSIS [None]
  - GINGIVAL INFECTION [None]
  - NEURALGIA [None]
  - RESPIRATORY TRACT INFECTION [None]
  - LOWER RESPIRATORY TRACT INFECTION [None]
  - JOINT DESTRUCTION [None]
  - EAR INFECTION [None]
  - SINUSITIS [None]
  - CATHETERISATION CARDIAC ABNORMAL [None]
  - PNEUMONIA BACTERIAL [None]
  - AMNESIA [None]
  - UPPER RESPIRATORY TRACT INFECTION [None]
  - TOOTH LOSS [None]
  - INJECTION SITE PAIN [None]
  - LYMPHOEDEMA [None]
  - DYSPNOEA [None]
  - INJECTION SITE HAEMATOMA [None]
